FAERS Safety Report 8157752-7 (Version None)
Quarter: 2012Q1

REPORT INFORMATION
  Report Type: 
  Country: None (occurrence: None)
  Receive Date: 20120222
  Receipt Date: 20120216
  Transmission Date: 20120608
  Serious: Yes (Other)
  Sender: FDA-Public Use
  Company Number: JP-PFIZER INC-2012010042

PATIENT
  Age: 72 Year
  Sex: Female

DRUGS (5)
  1. LYRICA [Suspect]
     Indication: NEURALGIA
     Dosage: 75 MG/DAY
     Route: 048
     Dates: start: 20111129, end: 20111205
  2. MOBIC [Concomitant]
     Indication: NEURALGIA
     Dosage: 10 MG/DAY
     Dates: start: 20110927
  3. LYRICA [Suspect]
     Indication: HYPOAESTHESIA
     Dosage: 150 MG/DAY
     Route: 048
     Dates: start: 20111206, end: 20111219
  4. LYRICA [Suspect]
     Dosage: 450 MG/DAY
     Route: 048
     Dates: start: 20111227
  5. LYRICA [Suspect]
     Dosage: 300 MG/DAY
     Route: 048
     Dates: start: 20111220, end: 20111226

REACTIONS (2)
  - MUSCULAR WEAKNESS [None]
  - FALL [None]
